FAERS Safety Report 14830128 (Version 1)
Quarter: 2018Q2

REPORT INFORMATION
  Report Type: Spontaneous
  Country: DE (occurrence: DE)
  Receive Date: 20180430
  Receipt Date: 20180430
  Transmission Date: 20180711
  Serious: Yes (Other)
  Sender: FDA-Public Use
  Company Number: DE-B.I. PHARMACEUTICALS,INC./RIDGEFIELD-2018-BI-022475

PATIENT
  Age: 60 Year
  Sex: Male

DRUGS (2)
  1. AFATINIB [Suspect]
     Active Substance: AFATINIB
     Indication: NON-SMALL CELL LUNG CANCER STAGE IV
     Route: 065
     Dates: start: 201505
  2. AFATINIB [Suspect]
     Active Substance: AFATINIB
     Indication: EGFR GENE MUTATION

REACTIONS (2)
  - Neoplasm progression [Unknown]
  - Neoplasm progression [Unknown]

NARRATIVE: CASE EVENT DATE: 201702
